FAERS Safety Report 5844608-5 (Version None)
Quarter: 2008Q3

REPORT INFORMATION
  Report Type: 
  Country: None (occurrence: None)
  Receive Date: 20080812
  Receipt Date: 20080103
  Transmission Date: 20090109
  Serious: Yes (Hospitalization, Disabling)
  Sender: FDA-Public Use
  Company Number: 2008S1011909

PATIENT
  Age: 65 Year
  Sex: Male

DRUGS (2)
  1. AMLODIPINE [Suspect]
     Indication: HYPERTENSION
     Dosage: 10 MG; DAILY
     Dates: end: 20071122
  2. IRBESARTAN [Concomitant]

REACTIONS (2)
  - DEMYELINATING POLYNEUROPATHY [None]
  - MESENTERIC PANNICULITIS [None]
